FAERS Safety Report 18272023 (Version 1)
Quarter: 2020Q3

REPORT INFORMATION
  Report Type: Spontaneous
  Country: GB (occurrence: GB)
  Receive Date: 20200916
  Receipt Date: 20200916
  Transmission Date: 20201103
  Serious: Yes (Other)
  Sender: FDA-Public Use
  Company Number: GB-DEXPHARM-20200816

PATIENT
  Age: 78 Year
  Sex: Male
  Weight: 95.25 kg

DRUGS (5)
  1. TAMFREX XL [Concomitant]
     Active Substance: TAMSULOSIN
  2. ISOSORBIDE MONONITRATE. [Suspect]
     Active Substance: ISOSORBIDE MONONITRATE
     Indication: ANGINA PECTORIS
     Route: 048
     Dates: start: 20200723, end: 20200821
  3. SANDOZ AMLODIPINE [Concomitant]
     Active Substance: AMLODIPINE MALEATE
  4. ASPAR PHARMS ASPIRIN [Concomitant]
  5. DR REDDYS LABS UK CETIRIZINE [Concomitant]

REACTIONS (1)
  - Vision blurred [Recovered/Resolved]

NARRATIVE: CASE EVENT DATE: 20200728
